FAERS Safety Report 9148828 (Version 2)
Quarter: 2013Q2

REPORT INFORMATION
  Report Type: Report from Study
  Country: GB (occurrence: GB)
  Receive Date: 20130308
  Receipt Date: 20130603
  Transmission Date: 20140414
  Serious: Yes (Death, Hospitalization)
  Sender: FDA-Public Use
  Company Number: GB-JNJFOC-20130300532

PATIENT
  Age: 59 Year
  Sex: Male
  Weight: 83 kg

DRUGS (9)
  1. USTEKINUMAB [Suspect]
     Indication: PSORIASIS
     Route: 058
     Dates: start: 20110217, end: 20120822
  2. NAPROXEN [Suspect]
     Indication: PRODUCT USED FOR UNKNOWN INDICATION
     Dates: start: 20110222, end: 20120801
  3. BETNOVATE [Concomitant]
     Dates: start: 20110222
  4. DOVOBET [Concomitant]
     Dates: start: 20110222
  5. PARACETAMOL [Concomitant]
     Dates: start: 20110222
  6. CO-CODAMOL [Concomitant]
     Dates: start: 20110222, end: 20120801
  7. FUROSEMIDE [Concomitant]
     Dates: start: 20120801
  8. TRAMADOL [Concomitant]
     Dates: start: 20120801
  9. DIHYDROCODEINE [Concomitant]
     Dates: start: 20120928

REACTIONS (6)
  - Renal failure [Unknown]
  - Lower respiratory tract infection [Unknown]
  - Abdominal pain [Recovered/Resolved]
  - Parotid gland enlargement [Unknown]
  - Skin mass [Not Recovered/Not Resolved]
  - Death [Fatal]
